FAERS Safety Report 6227814-X (Version None)
Quarter: 2009Q2

REPORT INFORMATION
  Report Type: 
  Country: None (occurrence: None)
  Receive Date: 20090612
  Receipt Date: 20090609
  Transmission Date: 20091009
  Serious: Yes (Disabling)
  Sender: FDA-Public Use
  Company Number: A0781042A

PATIENT
  Age: 80 Year
  Sex: Female
  Weight: 58.2 kg

DRUGS (2)
  1. ONDANSETRON [Suspect]
     Indication: NAUSEA
     Dosage: 8MG AS REQUIRED
     Route: 048
     Dates: start: 20090423, end: 20090424
  2. NO CONCURRENT MEDICATION [Concomitant]

REACTIONS (1)
  - RASH GENERALISED [None]
